FAERS Safety Report 9729740 (Version 2)
Quarter: 2015Q3

REPORT INFORMATION
  Report Type: Spontaneous
  Country: US (occurrence: US)
  Receive Date: 20131204
  Receipt Date: 20150804
  Transmission Date: 20151125
  Serious: No
  Sender: FDA-Public Use
  Company Number: US-GILEAD-2009-0021953

PATIENT
  Age: 76 Year
  Sex: Female
  Weight: 58.06 kg

DRUGS (11)
  1. NITROLINGUAL [Concomitant]
     Active Substance: NITROGLYCERIN
  2. DICLOFENAC SODIUM. [Concomitant]
     Active Substance: DICLOFENAC SODIUM
  3. DIGOXIN. [Concomitant]
     Active Substance: DIGOXIN
  4. LOVASTATIN. [Concomitant]
     Active Substance: LOVASTATIN
  5. GABAPENTIN. [Concomitant]
     Active Substance: GABAPENTIN
  6. LETAIRIS [Suspect]
     Active Substance: AMBRISENTAN
     Indication: PULMONARY ARTERIAL HYPERTENSION
     Route: 048
     Dates: start: 20090324
  7. WARFARIN [Concomitant]
     Active Substance: WARFARIN
  8. METOPROLOL [Concomitant]
     Active Substance: METOPROLOL
  9. SPIRONOLACTONE. [Concomitant]
     Active Substance: SPIRONOLACTONE
  10. GLIMEPIRIDE. [Concomitant]
     Active Substance: GLIMEPIRIDE
  11. LASIX [Concomitant]
     Active Substance: FUROSEMIDE

REACTIONS (1)
  - Coagulation test abnormal [Unknown]
